FAERS Safety Report 5481574-9 (Version None)
Quarter: 2007Q4

REPORT INFORMATION
  Report Type: 
  Country: None (occurrence: None)
  Receive Date: 20071010
  Receipt Date: 20071004
  Transmission Date: 20080405
  Serious: Yes (Hospitalization)
  Sender: FDA-Public Use
  Company Number: US-ALLERGAN-0710928US

PATIENT
  Sex: Male
  Weight: 88 kg

DRUGS (2)
  1. BOTOX [Suspect]
     Indication: MUSCULAR WEAKNESS
     Dosage: UNK, SINGLE
     Route: 030
     Dates: start: 20070201, end: 20070201
  2. TEMOZOLOMIDE [Suspect]
     Indication: GLIOBLASTOMA MULTIFORME
     Dosage: 145 MG, QD
     Route: 048
     Dates: start: 20061201, end: 20070118

REACTIONS (3)
  - CELLULITIS [None]
  - OEDEMA [None]
  - PAIN [None]
